FAERS Safety Report 17658253 (Version 4)
Quarter: 2020Q2

REPORT INFORMATION
  Report Type: Report from Study
  Country: US (occurrence: US)
  Receive Date: 20200412
  Receipt Date: 20200423
  Transmission Date: 20200713
  Serious: Yes (Hospitalization, Other)
  Sender: FDA-Public Use
  Company Number: NVSC2020US097378

PATIENT
  Sex: Female

DRUGS (2)
  1. GILENYA [Suspect]
     Active Substance: FINGOLIMOD HYDROCHLORIDE
     Indication: MULTIPLE SCLEROSIS
     Dosage: 0.5 MG, QD
     Route: 048
  2. GILENYA [Suspect]
     Active Substance: FINGOLIMOD HYDROCHLORIDE
     Dosage: 0.5 MG, QOD
     Route: 048

REACTIONS (8)
  - Amnesia [Unknown]
  - Alopecia [Unknown]
  - White blood cell count abnormal [Unknown]
  - Multiple sclerosis relapse [Unknown]
  - Liver disorder [Unknown]
  - White blood cell count decreased [Unknown]
  - Off label use [Unknown]
  - Temperature intolerance [Unknown]
